FAERS Safety Report 4354533-7 (Version None)
Quarter: 2004Q2

REPORT INFORMATION
  Report Type: 
  Country: None (occurrence: None)
  Receive Date: 20040503
  Receipt Date: 20040423
  Transmission Date: 20050107
  Serious: Yes (Life-Threatening, Hospitalization)
  Sender: FDA-Public Use
  Company Number: US-SHR-03-016978

PATIENT
  Age: 72 Year
  Sex: Male
  Weight: 72.6 kg

DRUGS (4)
  1. MAGNEVIST [Suspect]
     Indication: NUCLEAR MAGNETIC RESONANCE IMAGING BRAIN
     Dosage: 40 ML, 1 DOSE, INTRAVENOUS
     Route: 042
     Dates: start: 20031027, end: 20031027
  2. ASPIRIN [Concomitant]
  3. ALTACE [Concomitant]
  4. MULTIVITAMINS (RETINOL, PANTHENOL) [Concomitant]

REACTIONS (12)
  - ANAPHYLACTIC REACTION [None]
  - ARRHYTHMIA [None]
  - CORONARY ARTERY OCCLUSION [None]
  - ELECTROMECHANICAL DISSOCIATION [None]
  - EYE DISORDER [None]
  - FEELING ABNORMAL [None]
  - MYOCARDIAL ISCHAEMIA [None]
  - PULSE ABSENT [None]
  - RESPIRATORY ARREST [None]
  - SHOCK [None]
  - VERTIGO [None]
  - VISION BLURRED [None]
